FAERS Safety Report 6631794-2 (Version None)
Quarter: 2010Q1

REPORT INFORMATION
  Report Type: 
  Country: None (occurrence: None)
  Receive Date: 20100312
  Receipt Date: 20100303
  Transmission Date: 20100710
  Serious: Yes (Hospitalization)
  Sender: FDA-Public Use
  Company Number: JP-ASTRAZENECA-2009SE03406

PATIENT
  Age: 82 Year
  Sex: Female
  Weight: 65 kg

DRUGS (5)
  1. BLOPRESS [Suspect]
     Route: 048
     Dates: start: 20080701
  2. AMLODIPINE [Suspect]
     Route: 048
     Dates: start: 20080701
  3. MEVALOTIN [Suspect]
     Route: 048
     Dates: start: 20080701
  4. ALTAT [Suspect]
     Route: 048
     Dates: start: 20080701
  5. LASIX [Suspect]
     Route: 048
     Dates: start: 20080701

REACTIONS (1)
  - PNEUMONITIS [None]
